FAERS Safety Report 19190851 (Version 1)
Quarter: 2021Q2

REPORT INFORMATION
  Report Type: Report from Study
  Country: US (occurrence: US)
  Receive Date: 20210428
  Receipt Date: 20210428
  Transmission Date: 20210717
  Serious: No
  Sender: FDA-Public Use
  Company Number: NVSC2021US093975

PATIENT
  Sex: Female

DRUGS (2)
  1. DEPO?PROVERA [Concomitant]
     Active Substance: MEDROXYPROGESTERONE ACETATE
     Indication: PRODUCT USED FOR UNKNOWN INDICATION
     Dosage: UNK
     Route: 065
  2. COSENTYX [Suspect]
     Active Substance: SECUKINUMAB
     Indication: PSORIASIS
     Dosage: 150 MG, QW (AT WEEK 0. 1, 2, 3 AND 4 THEN Q4W)
     Route: 058
     Dates: start: 20210131

REACTIONS (2)
  - Product dose omission issue [Unknown]
  - Psoriasis [Unknown]
